FAERS Safety Report 12733260 (Version 1)
Quarter: 2016Q3

REPORT INFORMATION
  Report Type: Spontaneous
  Country: US (occurrence: US)
  Receive Date: 20160912
  Receipt Date: 20160912
  Transmission Date: 20161109
  Serious: No
  Sender: FDA-Public Use
  Company Number: US-TEVA-584573USA

PATIENT
  Sex: Male

DRUGS (2)
  1. FENTANYL CITRATE. [Concomitant]
     Active Substance: FENTANYL CITRATE
  2. ACTIQ [Suspect]
     Active Substance: FENTANYL CITRATE
     Indication: COMPLEX REGIONAL PAIN SYNDROME
     Dosage: 400 MILLIGRAM DAILY;
     Route: 065

REACTIONS (1)
  - Product use issue [Unknown]
